FAERS Safety Report 9449397 (Version 1)
Quarter: 2013Q3

REPORT INFORMATION
  Report Type: Spontaneous
  Country: US (occurrence: US)
  Receive Date: 20130809
  Receipt Date: 20130809
  Transmission Date: 20140515
  Serious: Yes (Other)
  Sender: FDA-Public Use
  Company Number: US-009507513-1308USA003430

PATIENT
  Sex: Female

DRUGS (2)
  1. INTRONA [Suspect]
     Dosage: UNK
     Route: 042
  2. EMEND [Concomitant]
     Dosage: UNK
     Route: 042

REACTIONS (1)
  - Rash [Recovered/Resolved]
